FAERS Safety Report 5145709-X (Version None)
Quarter: 2006Q4

REPORT INFORMATION
  Report Type: 
  Country: None (occurrence: None)
  Receive Date: 20060908
  Receipt Date: 20051102
  Transmission Date: 20070319
  Serious: Yes (Other)
  Sender: FDA-Public Use
  Company Number: 143578USA

PATIENT
  Sex: Female

DRUGS (1)
  1. PROMETHAZINE [Suspect]
     Indication: NAUSEA
     Dosage: 50 MILLIGRAM ONCE INTRAVENOUS (NOS)
     Route: 042
     Dates: start: 20051005, end: 20051005

REACTIONS (3)
  - AGITATION [None]
  - HALLUCINATION [None]
  - NERVOUSNESS [None]
